FAERS Safety Report 5104104-X (Version None)
Quarter: 2006Q3

REPORT INFORMATION
  Report Type: 
  Country: None (occurrence: None)
  Receive Date: 20060913
  Receipt Date: 20050414
  Transmission Date: 20061208
  Serious: Yes (Hospitalization)
  Sender: FDA-Public Use
  Company Number: JP-BOEHRINGER INGELHEIM PHARMACEUTICALS, INC.-2005-BP-06605NB

PATIENT
  Sex: Female
  Weight: 58.5 kg

DRUGS (6)
  1. MICARDIS [Suspect]
     Indication: HYPERTENSION
     Route: 048
     Dates: start: 20040117, end: 20040517
  2. LIPITOR [Concomitant]
     Indication: HYPERLIPIDAEMIA
     Route: 048
     Dates: start: 20020101, end: 20040517
  3. AMARYL [Concomitant]
     Indication: DIABETES MELLITUS
     Route: 048
     Dates: start: 20030116, end: 20040517
  4. NEPHROX [Concomitant]
     Indication: HYPERTENSION
     Route: 048
     Dates: start: 20030109, end: 20040517
  5. HAJIME (ATENOLOL) [Concomitant]
     Indication: HYPERTENSION
     Route: 048
     Dates: start: 20030228, end: 20040517
  6. LUPRAC [Concomitant]
     Indication: OEDEMA
     Route: 048
     Dates: start: 20031226, end: 20040517

REACTIONS (2)
  - ATRIAL FIBRILLATION [None]
  - CARDIAC FAILURE [None]
